FAERS Safety Report 4314612-7 (Version None)
Quarter: 2004Q1

REPORT INFORMATION
  Report Type: 
  Country: None (occurrence: None)
  Receive Date: 20040309
  Receipt Date: 20040219
  Transmission Date: 20041129
  Serious: Yes (Other)
  Sender: FDA-Public Use
  Company Number: 200410039BYL

PATIENT
  Age: 13 Year
  Sex: Male
  Weight: 44.6 kg

DRUGS (2)
  1. GAMIMUNE N 5% [Suspect]
     Indication: ANTIVIRAL PROPHYLAXIS
     Dosage: 5 G, TOTAL DAILY; INTRAVENOUS DRIP
     Route: 041
     Dates: start: 20031101, end: 20040101
  2. BAKTAR [Concomitant]

REACTIONS (1)
  - HTLV-1 ANTIBODY POSITIVE [None]
